FAERS Safety Report 12183813 (Version 1)
Quarter: 2016Q1

REPORT INFORMATION
  Report Type: Other
  Country: GB (occurrence: GB)
  Receive Date: 20160316
  Receipt Date: 20160316
  Transmission Date: 20160526
  Serious: Yes (Other)
  Sender: FDA-Public Use
  Company Number: GB-CIPLA LTD.-2016GB02498

PATIENT

DRUGS (12)
  1. ALENDRONIC ACID [Concomitant]
     Active Substance: ALENDRONIC ACID
     Dosage: UNK, USE AS DIRECTED
     Route: 065
     Dates: start: 20141118
  2. CLOPIDOGREL [Concomitant]
     Active Substance: CLOPIDOGREL BISULFATE
     Dosage: 1 DF, QD
     Route: 065
     Dates: start: 20160209
  3. LOSARTAN. [Concomitant]
     Active Substance: LOSARTAN
     Dosage: 1 DF, QD
     Route: 065
     Dates: start: 20160223
  4. SALMETEROL [Concomitant]
     Active Substance: SALMETEROL
     Dosage: 2 DF, BID
     Route: 065
     Dates: start: 20141118
  5. AMLODIPINE [Suspect]
     Active Substance: AMLODIPINE BESYLATE
     Dosage: UNK
     Route: 065
     Dates: start: 20160216
  6. ATORVASTATIN [Concomitant]
     Active Substance: ATORVASTATIN
     Dosage: 1 DF, QD
     Route: 065
     Dates: start: 20160209, end: 20160216
  7. RAMIPRIL. [Concomitant]
     Active Substance: RAMIPRIL
     Dosage: 1 DF, QD
     Route: 065
     Dates: start: 20160209, end: 20160216
  8. SALBUTAMOL [Concomitant]
     Active Substance: ALBUTEROL
     Dosage: 2 DF, QID, AS NEEDED
     Dates: start: 20141118
  9. CO-PROXAMOL [Concomitant]
     Active Substance: ACETAMINOPHEN\PROPOXYPHENE HYDROCHLORIDE
     Dosage: 2 DF, TID
     Route: 065
     Dates: start: 20141118
  10. FLUTICASONE [Concomitant]
     Active Substance: FLUTICASONE\FLUTICASONE PROPIONATE
     Dosage: 1 DF, BID
     Dates: start: 20141118
  11. CALCIUM CARBONATE. [Concomitant]
     Active Substance: CALCIUM CARBONATE
     Dosage: 1 DF, BID
     Route: 065
     Dates: start: 20150324
  12. LANSOPRAZOLE. [Concomitant]
     Active Substance: LANSOPRAZOLE
     Dosage: 2 DF, UNK
     Route: 065
     Dates: start: 20141118

REACTIONS (1)
  - Swollen tongue [Unknown]

NARRATIVE: CASE EVENT DATE: 20160223
